FAERS Safety Report 13320882 (Version 1)
Quarter: 2017Q1

REPORT INFORMATION
  Report Type: Spontaneous
  Country: KR (occurrence: KR)
  Receive Date: 20170310
  Receipt Date: 20170310
  Transmission Date: 20170428
  Serious: Yes (Other)
  Sender: FDA-Public Use
  Company Number: KR-009507513-1703KOR003735

PATIENT
  Age: 67 Year
  Sex: Female
  Weight: 61.3 kg

DRUGS (9)
  1. ILDONG ADRIAMYCIN PFS [Concomitant]
     Indication: OVARIAN CANCER
     Dosage: 58.9 MG, ONCE, CYCLE 1
     Route: 042
     Dates: start: 20161025, end: 20161025
  2. FOSAMAX [Concomitant]
     Active Substance: ALENDRONATE SODIUM
     Indication: OSTEOPOROSIS
     Dosage: 70 MG, QD
     Route: 048
     Dates: start: 20161024
  3. AMODIPIN [Concomitant]
     Indication: DIABETES MELLITUS
     Dosage: 5 MG, QD
     Route: 048
  4. EMEND (FOSAPREPITANT DIMEGLUMINE) [Suspect]
     Active Substance: FOSAPREPITANT DIMEGLUMINE
     Indication: PROPHYLAXIS OF NAUSEA AND VOMITING
     Dosage: 150 MG, ONCE
     Route: 042
     Dates: start: 20161025, end: 20161025
  5. DEXAMETHASONE YUHAN [Concomitant]
     Indication: PREMEDICATION
     Dosage: STRENGTH: 5 MG/ML, 12 MG, ONCE
     Route: 042
     Dates: start: 20161025, end: 20161025
  6. TRAJENTA [Concomitant]
     Active Substance: LINAGLIPTIN
     Indication: DIABETES MELLITUS
     Dosage: 5 MG, QD
     Route: 048
  7. CISPLATIN. [Concomitant]
     Active Substance: CISPLATIN
     Indication: OVARIAN CANCER
     Dosage: STRENGTH: 50 MG/100ML, 94.2 MG, ONCE, CYCLE 1
     Route: 042
     Dates: start: 20161025, end: 20161025
  8. NASERON [Concomitant]
     Indication: PREMEDICATION
     Dosage: 0.3 MG, ONCE
     Route: 042
     Dates: start: 20161025, end: 20161025
  9. TROPHERINE [Concomitant]
     Indication: OCULAR HYPERTENSION
     Dosage: 0.8 ML, QD
     Route: 047
     Dates: start: 201605

REACTIONS (3)
  - Neutropenia [Recovered/Resolved]
  - Chronic kidney disease [Recovering/Resolving]
  - Hyperglycaemia [Recovering/Resolving]

NARRATIVE: CASE EVENT DATE: 20161025
